FAERS Safety Report 5952277-9 (Version None)
Quarter: 2008Q4

REPORT INFORMATION
  Report Type: 
  Country: None (occurrence: None)
  Receive Date: 20081113
  Receipt Date: 20081110
  Transmission Date: 20090506
  Serious: Yes (Hospitalization)
  Sender: FDA-Public Use
  Company Number: DE-WYE-G02540908

PATIENT
  Age: 58 Year
  Sex: Male

DRUGS (7)
  1. VENLAFAXINE HCL [Suspect]
     Indication: DEPRESSION
     Route: 048
     Dates: start: 20080417, end: 20080418
  2. VENLAFAXINE HCL [Interacting]
     Route: 048
     Dates: start: 20080419, end: 20080421
  3. VENLAFAXINE HCL [Interacting]
     Route: 048
     Dates: start: 20080422, end: 20080424
  4. VENLAFAXINE HCL [Interacting]
     Route: 048
     Dates: start: 20080425, end: 20080427
  5. VENLAFAXINE HCL [Interacting]
     Route: 048
     Dates: start: 20080428, end: 20080506
  6. VENLAFAXINE HCL [Interacting]
     Route: 048
     Dates: start: 20080507, end: 20080512
  7. XIMOVAN [Interacting]
     Route: 048
     Dates: start: 20080401, end: 20080512

REACTIONS (3)
  - DRUG INTERACTION [None]
  - HEPATIC ENZYME INCREASED [None]
  - HEPATOCELLULAR INJURY [None]
